FAERS Safety Report 9353691 (Version 1)
Quarter: 2013Q2

REPORT INFORMATION
  Report Type: Spontaneous
  Country: US (occurrence: None)
  Receive Date: 20130617
  Receipt Date: 20130617
  Transmission Date: 20140414
  Serious: Yes (Other)
  Sender: FDA-Public Use
  Company Number: None

PATIENT
  Age: 58 Year
  Sex: Male
  Weight: 99.34 kg

DRUGS (1)
  1. AUGMENTIN [Suspect]
     Dosage: ONE TABLET DAILY PO
     Route: 048
     Dates: start: 20100802, end: 20100816

REACTIONS (4)
  - Tendon rupture [None]
  - Hypoaesthesia [None]
  - Gait disturbance [None]
  - Oedema [None]
